FAERS Safety Report 9467483 (Version 6)
Quarter: 2014Q4

REPORT INFORMATION
  Report Type: Spontaneous
  Country: BR (occurrence: BR)
  Receive Date: 20130821
  Receipt Date: 20141120
  Transmission Date: 20150529
  Serious: Yes (Life-Threatening, Hospitalization, Other)
  Sender: FDA-Public Use
  Company Number: BR-ROCHE-1262486

PATIENT
  Age: 47 Year
  Sex: Male

DRUGS (1)
  1. MABTHERA [Suspect]
     Active Substance: RITUXIMAB
     Indication: NON-HODGKIN^S LYMPHOMA
     Route: 065

REACTIONS (6)
  - Cardiac failure congestive [Not Recovered/Not Resolved]
  - Lymphocytic infiltration [Unknown]
  - Pulmonary mass [Recovering/Resolving]
  - Cardiac failure [Not Recovered/Not Resolved]
  - Pneumocystis jirovecii infection [Recovered/Resolved]
  - Nodule [Not Recovered/Not Resolved]
